FAERS Safety Report 5471573-5 (Version None)
Quarter: 2007Q3

REPORT INFORMATION
  Report Type: 
  Country: None (occurrence: None)
  Receive Date: 20070928
  Receipt Date: 20070119
  Transmission Date: 20080115
  Serious: No
  Sender: FDA-Public Use
  Company Number: US-BRISTOL-MYERS SQUIBB COMPANY-13649454

PATIENT
  Age: 84 Year
  Sex: Female
  Weight: 83 kg

DRUGS (8)
  1. DEFINITY [Suspect]
     Indication: STRESS ECHOCARDIOGRAM
     Route: 042
  2. MAXIDEX [Concomitant]
  3. PRIMIDONE [Concomitant]
  4. LORAZEPAM [Concomitant]
  5. DARVOCET [Concomitant]
  6. RANITIDINE HCL [Concomitant]
  7. POTASSIUM CHLORIDE [Concomitant]
  8. LASIX [Concomitant]

REACTIONS (4)
  - BACK PAIN [None]
  - DYSPNOEA [None]
  - RESTLESSNESS [None]
  - TREMOR [None]
